FAERS Safety Report 7447215-6 (Version None)
Quarter: 2011Q2

REPORT INFORMATION
  Report Type: 
  Country: None (occurrence: None)
  Receive Date: 20110429
  Receipt Date: 20101213
  Transmission Date: 20111010
  Serious: No
  Sender: FDA-Public Use
  Company Number: US-ASTRAZENECA-2010SE59084

PATIENT
  Age: 58 Year
  Sex: Female

DRUGS (2)
  1. PREDNISOLONE [Concomitant]
  2. NEXIUM [Suspect]
     Route: 048

REACTIONS (3)
  - LIVER DISORDER [None]
  - INFECTIOUS MONONUCLEOSIS [None]
  - INFLUENZA [None]
